FAERS Safety Report 6143476-4 (Version None)
Quarter: 2009Q2

REPORT INFORMATION
  Report Type: 
  Country: None (occurrence: None)
  Receive Date: 20090403
  Receipt Date: 20090327
  Transmission Date: 20091009
  Serious: Yes (Other)
  Sender: FDA-Public Use
  Company Number: PHHY2009CA10170

PATIENT
  Sex: Female
  Weight: 43.537 kg

DRUGS (13)
  1. ACLASTA [Suspect]
     Indication: OSTEOPOROSIS
     Dosage: UNK
     Dates: start: 20081010
  2. COZAAR [Concomitant]
  3. XANAX [Concomitant]
  4. ELAVIL [Concomitant]
  5. CARBOCAL D [Concomitant]
  6. COTAZYM [Concomitant]
  7. FLORENT [Concomitant]
  8. DICETEL [Concomitant]
  9. VITAMIN B-12 [Concomitant]
  10. LOSEC [Concomitant]
  11. QUININE SULFATE [Concomitant]
  12. QUESTRAN [Concomitant]
  13. VELITEN [Concomitant]

REACTIONS (3)
  - ASTHENIA [None]
  - MALAISE [None]
  - TREMOR [None]
